FAERS Safety Report 6978995-1 (Version None)
Quarter: 2010Q3

REPORT INFORMATION
  Report Type: 
  Country: None (occurrence: None)
  Receive Date: 20100913
  Receipt Date: 20100908
  Transmission Date: 20110219
  Serious: Yes (Other)
  Sender: FDA-Public Use
  Company Number: BE-BRISTOL-MYERS SQUIBB COMPANY-15168883

PATIENT
  Age: 72 Year
  Sex: Male

DRUGS (1)
  1. ORENCIA [Suspect]
     Route: 042
     Dates: start: 20020101

REACTIONS (2)
  - DIVERTICULITIS [None]
  - ENTEROVESICAL FISTULA [None]
